FAERS Safety Report 10506060 (Version 20)
Quarter: 2016Q3

REPORT INFORMATION
  Report Type: Report from Study
  Country: CA (occurrence: CA)
  Receive Date: 20141008
  Receipt Date: 20160831
  Transmission Date: 20161109
  Serious: Yes (Hospitalization, Other)
  Sender: FDA-Public Use
  Company Number: PHHY2012CA020442

PATIENT
  Age: 68 Year
  Sex: Female

DRUGS (11)
  1. SANDOSTATIN LAR DEPOT [Suspect]
     Active Substance: OCTREOTIDE ACETATE
     Dosage: 10 MG, UNK
     Route: 030
  2. NOVO-BETAHISTINE [Concomitant]
     Indication: PRODUCT USED FOR UNKNOWN INDICATION
     Dosage: 16 MG (1 TABLET), TID
     Route: 065
  3. NOVO-BETAHISTINE [Concomitant]
     Dosage: 16 MG FOLLOWED BY 7 DAYS, BID
     Route: 065
  4. SANDOSTATIN LAR DEPOT [Suspect]
     Active Substance: OCTREOTIDE ACETATE
     Dosage: 40 MG, QMO (EVERY 4 WEEKS)
     Route: 030
  5. NOVO-BETAHISTINE [Concomitant]
     Dosage: 16 MG (FOR 7 DAYS), QD
     Route: 065
  6. STATEX [Concomitant]
     Active Substance: MORPHINE SULFATE
     Indication: PRODUCT USED FOR UNKNOWN INDICATION
     Route: 065
  7. TAMSULOSIN [Concomitant]
     Active Substance: TAMSULOSIN
     Indication: PRODUCT USED FOR UNKNOWN INDICATION
     Route: 065
  8. ACETAMINOPHEN. [Concomitant]
     Active Substance: ACETAMINOPHEN
     Indication: PRODUCT USED FOR UNKNOWN INDICATION
     Route: 065
  9. SANDOSTATIN LAR DEPOT [Suspect]
     Active Substance: OCTREOTIDE ACETATE
     Indication: CARCINOID TUMOUR
     Dosage: 40 MG, QMO (EVERY 4 WEEKS)
     Route: 030
     Dates: start: 20090512
  10. SANDOSTATIN LAR DEPOT [Suspect]
     Active Substance: OCTREOTIDE ACETATE
     Dosage: 50 MG, QMO (EVERY 4 WEEKS)
     Route: 030
  11. METOPROLOL. [Suspect]
     Active Substance: METOPROLOL
     Indication: PRODUCT USED FOR UNKNOWN INDICATION
     Route: 048

REACTIONS (16)
  - Dizziness [Not Recovered/Not Resolved]
  - Blood pressure systolic increased [Unknown]
  - Contusion [Unknown]
  - Nightmare [Unknown]
  - Hallucination [Unknown]
  - Diarrhoea [Unknown]
  - Visual field defect [Unknown]
  - Hot flush [Unknown]
  - Nausea [Unknown]
  - Headache [Unknown]
  - Eye movement disorder [Not Recovered/Not Resolved]
  - Nephrolithiasis [Unknown]
  - Hepatic cancer [Recovering/Resolving]
  - Blood pressure increased [Unknown]
  - Photopsia [Unknown]
  - Fall [Unknown]

NARRATIVE: CASE EVENT DATE: 20160501
